FAERS Safety Report 15770327 (Version 1)
Quarter: 2018Q4

REPORT INFORMATION
  Report Type: Spontaneous
  Country: US (occurrence: US)
  Receive Date: 20181227
  Receipt Date: 20181227
  Transmission Date: 20190205
  Serious: Yes (Other)
  Sender: FDA-Public Use
  Company Number: None

PATIENT
  Age: 76 Year
  Sex: Female
  Weight: 46.8 kg

DRUGS (11)
  1. TEMOZOLOMIDE. [Suspect]
     Active Substance: TEMOZOLOMIDE
     Indication: BRAIN NEOPLASM
     Route: 048
     Dates: start: 20181101
  2. BENZONATATE. [Concomitant]
     Active Substance: BENZONATATE
  3. CLARITHROMYCIN. [Concomitant]
     Active Substance: CLARITHROMYCIN
  4. RIFAMPIN. [Concomitant]
     Active Substance: RIFAMPIN
  5. ETHAMBUTOL [Concomitant]
     Active Substance: ETHAMBUTOL HYDROCHLORIDE
  6. TUSSIONEX PENNKINETIC [Concomitant]
     Active Substance: CHLORPHENIRAMINE\HYDROCODONE
  7. LEVOCETIRIZINE [Concomitant]
     Active Substance: LEVOCETIRIZINE
  8. TEMAZEPAM. [Concomitant]
     Active Substance: TEMAZEPAM
  9. LEVETIRACETAM. [Concomitant]
     Active Substance: LEVETIRACETAM
  10. MEGESTROL [Concomitant]
     Active Substance: MEGESTROL
  11. PYRIDOXINE [Concomitant]
     Active Substance: PYRIDOXINE

REACTIONS (3)
  - Disease progression [None]
  - Brain oedema [None]
  - Cytopenia [None]
